FAERS Safety Report 8982827 (Version 2)
Quarter: 2013Q1

REPORT INFORMATION
  Report Type: Spontaneous
  Country: US (occurrence: US)
  Receive Date: 20121221
  Receipt Date: 20130129
  Transmission Date: 20140127
  Serious: Yes (Death)
  Sender: FDA-Public Use
  Company Number: US-GILEAD-2012-0066702

PATIENT
  Sex: Male

DRUGS (14)
  1. LETAIRIS [Suspect]
     Indication: PULMONARY HYPERTENSION
     Dosage: 10 MG, QD
     Route: 048
     Dates: start: 20121003, end: 20121030
  2. LETAIRIS [Suspect]
     Indication: SYSTEMIC LUPUS ERYTHEMATOSUS
  3. METFORMIN [Concomitant]
     Indication: DIABETES MELLITUS
  4. ALOPURINOL [Concomitant]
  5. DIGOXIN [Concomitant]
  6. METOPROLOL [Concomitant]
  7. FERROUS SULFATE [Concomitant]
  8. KLOR-CON [Concomitant]
  9. ASA [Concomitant]
  10. LASIX                              /00032601/ [Concomitant]
  11. ENBREL [Concomitant]
  12. METOLAZONE [Concomitant]
  13. LORTAB                             /00607101/ [Concomitant]
  14. AMBIEN [Concomitant]

REACTIONS (1)
  - Death [Fatal]
